FAERS Safety Report 5366774-0 (Version None)
Quarter: 2007Q2

REPORT INFORMATION
  Report Type: 
  Country: None (occurrence: None)
  Receive Date: 20070622
  Receipt Date: 20061010
  Transmission Date: 20071010
  Serious: No
  Sender: FDA-Public Use
  Company Number: US-ASTRAZENECA-2006UW17722

PATIENT
  Sex: Male
  Weight: 93.2 kg

DRUGS (3)
  1. RHINOCORT [Suspect]
     Route: 045
  2. TYLENOL [Concomitant]
  3. AMOXICILLIN [Concomitant]

REACTIONS (2)
  - CARDIAC FLUTTER [None]
  - HEART RATE DECREASED [None]
